APPROVED DRUG PRODUCT: DIFICID
Active Ingredient: FIDAXOMICIN
Strength: 40MG/ML
Dosage Form/Route: FOR SUSPENSION;ORAL
Application: N213138 | Product #001
Applicant: CUBIST PHARMACEUTICALS LLC
Approved: Jan 24, 2020 | RLD: Yes | RS: Yes | Type: RX

PATENTS:
Patent 7906489 | Expires: Mar 4, 2027
Patent 8859510 | Expires: Jul 31, 2027
Patent 7378508 | Expires: Jul 31, 2027
Patent 7863249 | Expires: Jul 31, 2027
Patent 9808530 | Expires: May 28, 2034
Patent 9808530*PED | Expires: Nov 28, 2034
Patent 7378508*PED | Expires: Jan 31, 2028
Patent 7906489*PED | Expires: Sep 4, 2027
Patent 7863249*PED | Expires: Jan 31, 2028
Patent 8859510*PED | Expires: Jan 31, 2028

EXCLUSIVITY:
Code: ODE-367 | Date: Jan 24, 2027